FAERS Safety Report 6894284-8 (Version None)
Quarter: 2010Q3

REPORT INFORMATION
  Report Type: 
  Country: None (occurrence: None)
  Receive Date: 20100802
  Receipt Date: 20100728
  Transmission Date: 20110219
  Serious: Yes (Hospitalization)
  Sender: FDA-Public Use
  Company Number: US-SHIRE-ALL1-2010-04045

PATIENT

DRUGS (9)
  1. FOSRENOL [Suspect]
     Indication: HYPERPHOSPHATAEMIA
     Dosage: 1000 MG, AFTER MEALS 2 TO 3 TIMES DAILY
     Route: 048
     Dates: start: 20090101, end: 20100701
  2. RENVELA [Concomitant]
     Indication: HYPERPHOSPHATAEMIA
     Dosage: THREE TABLETS UNK MG WITH MEALS
     Route: 048
  3. PREDNISONE [Concomitant]
     Indication: RENAL TRANSPLANT
     Dosage: 5 MG, EVERY OTHER DAY
     Route: 048
     Dates: start: 20020101
  4. PREDNISONE [Concomitant]
     Dosage: 2.5 MG, ALTERNATE DAYS WITH 5 MG DOSE
     Route: 048
     Dates: start: 20020101
  5. LOSARTAN POTASSIUM [Concomitant]
     Indication: HYPERTENSION
     Dosage: 100 MG, 1X/DAY:QD
     Route: 048
  6. SIMVASTATIN [Concomitant]
     Indication: BLOOD CHOLESTEROL INCREASED
     Dosage: UNK MG, UNKNOWN
     Route: 048
  7. WARFARIN SODIUM [Concomitant]
     Indication: DEEP VEIN THROMBOSIS
     Dosage: 4 MG, OTHER, DAILY MONDAY THROUGH FRIDAY
     Route: 048
     Dates: start: 20080101
  8. WARFARIN SODIUM [Concomitant]
     Dosage: 5 MG, OTHER, DAILY ON SATURDAY AND SUNDAY
     Route: 048
     Dates: start: 20080101
  9. METOPROLOL TARTRATE [Concomitant]
     Indication: HYPERTENSION
     Dosage: 50 MG, 1X/DAY:QD
     Route: 048

REACTIONS (5)
  - BACK PAIN [None]
  - BLOOD PHOSPHORUS ABNORMAL [None]
  - CONDITION AGGRAVATED [None]
  - DEEP VEIN THROMBOSIS [None]
  - INTERVERTEBRAL DISC DISORDER [None]
